FAERS Safety Report 6295142-2 (Version None)
Quarter: 2009Q3

REPORT INFORMATION
  Report Type: 
  Country: None (occurrence: None)
  Receive Date: 20090731
  Receipt Date: 20090731
  Transmission Date: 20100115
  Serious: No
  Sender: FDA-Public Use
  Company Number: None

PATIENT
  Age: 55 Year
  Sex: Male

DRUGS (1)
  1. VARENICLINE [Suspect]
     Indication: SMOKING CESSATION THERAPY
     Dosage: 1 MG BID PO
     Route: 048
     Dates: start: 20090603, end: 20090727

REACTIONS (7)
  - ABNORMAL DREAMS [None]
  - ANGER [None]
  - ANXIETY [None]
  - INSOMNIA [None]
  - IRRITABILITY [None]
  - MAJOR DEPRESSION [None]
  - POST-TRAUMATIC STRESS DISORDER [None]
